FAERS Safety Report 10210493 (Version 1)
Quarter: 2014Q2

REPORT INFORMATION
  Report Type: Spontaneous
  Country: US (occurrence: None)
  Receive Date: 20140529
  Receipt Date: 20140529
  Transmission Date: 20141212
  Serious: Yes (Death)
  Sender: FDA-Public Use
  Company Number: None

PATIENT
  Age: 42 Year
  Sex: Female

DRUGS (1)
  1. NUVARING [Suspect]
     Indication: MEDICAL DEVICE COMPLICATION
     Route: 067

REACTIONS (6)
  - Deep vein thrombosis [None]
  - Medical device complication [None]
  - Respiratory arrest [None]
  - Embolism [None]
  - Off label use [None]
  - Pulmonary embolism [None]
